FAERS Safety Report 5824537-3 (Version None)
Quarter: 2008Q3

REPORT INFORMATION
  Report Type: 
  Country: None (occurrence: None)
  Receive Date: 20080728
  Receipt Date: 20080723
  Transmission Date: 20090109
  Serious: Yes (Other)
  Sender: FDA-Public Use
  Company Number: CN-ROCHE-577346

PATIENT
  Age: 39 Year
  Sex: Female

DRUGS (2)
  1. XELODA [Suspect]
     Indication: GASTRIC CANCER
     Route: 048
     Dates: start: 20080505
  2. OXALIPLATIN [Concomitant]
     Indication: GASTRIC CANCER
     Dates: start: 20080505

REACTIONS (1)
  - CUSHING'S SYNDROME [None]
